FAERS Safety Report 6371701-3 (Version None)
Quarter: 2009Q3

REPORT INFORMATION
  Report Type: 
  Country: None (occurrence: None)
  Receive Date: 20090923
  Receipt Date: 20080926
  Transmission Date: 20100115
  Serious: Yes (Hospitalization)
  Sender: FDA-Public Use
  Company Number: US-ASTRAZENECA-2008UW06945

PATIENT
  Age: 49 Year
  Sex: Female
  Weight: 81.6 kg

DRUGS (4)
  1. SEROQUEL [Suspect]
     Indication: SLEEP DISORDER
     Route: 048
     Dates: start: 20010101
  2. RISPERDAL [Concomitant]
  3. THORAZINE [Concomitant]
  4. DEPAKOTE [Concomitant]

REACTIONS (1)
  - DIABETES MELLITUS [None]
